FAERS Safety Report 7799278-6 (Version None)
Quarter: 2011Q4

REPORT INFORMATION
  Report Type: 
  Country: None (occurrence: None)
  Receive Date: 20111004
  Receipt Date: 20111004
  Transmission Date: 20120403
  Serious: Yes (Other)
  Sender: FDA-Public Use
  Company Number: None

PATIENT
  Age: 18 Year
  Sex: Female

DRUGS (1)
  1. PREVIFEM [Suspect]
     Indication: CONTRACEPTION
     Dosage: TAKE AS DIRECTED

REACTIONS (3)
  - PRODUCT QUALITY ISSUE [None]
  - PREGNANCY ON CONTRACEPTIVE [None]
  - PRODUCT LABEL ISSUE [None]
